FAERS Safety Report 8923839 (Version 1)
Quarter: 2012Q4

REPORT INFORMATION
  Report Type: 
  Country: IN (occurrence: IN)
  Receive Date: 20121126
  Receipt Date: 20121126
  Transmission Date: 20130627
  Serious: Yes (Other)
  Sender: FDA-Public Use
  Company Number: IN-BAYER-2012-121605

PATIENT
  Age: 66 Year
  Sex: Female

DRUGS (1)
  1. MAGNEVIST [Suspect]
     Indication: PELVIC MRI
     Dosage: 20 ml, UNK
     Dates: start: 20121117, end: 20121117

REACTIONS (1)
  - Dyskinesia [Recovered/Resolved]
